FAERS Safety Report 7675507-4 (Version None)
Quarter: 2011Q3

REPORT INFORMATION
  Report Type: 
  Country: None (occurrence: None)
  Receive Date: 20110810
  Receipt Date: 20110729
  Transmission Date: 20111222
  Serious: Yes (Death, Hospitalization)
  Sender: FDA-Public Use
  Company Number: ZA-BAYER-2011-066312

PATIENT
  Age: 49 Year
  Sex: Male
  Weight: 47 kg

DRUGS (5)
  1. ETHAMBUTOL HYDROCHLORIDE [Suspect]
     Indication: PULMONARY TUBERCULOSIS
     Dosage: 800 MG, UNK
     Dates: start: 20110428
  2. PYRAZINAMIDE [Suspect]
     Indication: PULMONARY TUBERCULOSIS
     Dosage: 1000 MG, UNK
     Dates: start: 20110428
  3. RIFAMPICIN [Suspect]
     Indication: PULMONARY TUBERCULOSIS
     Dosage: 600 MG, UNK
     Dates: start: 20110428
  4. ACTRAPID [Concomitant]
     Dosage: 10 U, UNK
     Route: 058
     Dates: start: 20110701
  5. MOXIFLOXACIN [Suspect]
     Indication: PULMONARY TUBERCULOSIS
     Dosage: 400 MG, UNK
     Dates: start: 20110428

REACTIONS (2)
  - RENAL FAILURE [None]
  - HEPATIC ENZYME INCREASED [None]
